FAERS Safety Report 4435746-2 (Version None)
Quarter: 2004Q3

REPORT INFORMATION
  Report Type: 
  Country: None (occurrence: None)
  Receive Date: 20040826
  Receipt Date: 20040813
  Transmission Date: 20050211
  Serious: Yes (Other)
  Sender: FDA-Public Use
  Company Number: 2004056304

PATIENT
  Age: 77 Year
  Sex: Male
  Weight: 58.9676 kg

DRUGS (3)
  1. LIPITOR [Suspect]
     Indication: BLOOD CHOLESTEROL
     Dosage: 10 MG (10 MG, 1 IN 1 D)
  2. LISINOPRIL [Concomitant]
  3. AMLODIPINE BESYLATE [Concomitant]

REACTIONS (4)
  - ASTHENIA [None]
  - HYPOAESTHESIA [None]
  - PAIN IN EXTREMITY [None]
  - QUADRUPLE VESSEL BYPASS GRAFT [None]
